FAERS Safety Report 9543694 (Version 1)
Quarter: 2013Q3

REPORT INFORMATION
  Report Type: Spontaneous
  Country: DE (occurrence: DE)
  Receive Date: 20130923
  Receipt Date: 20130923
  Transmission Date: 20140515
  Serious: Yes (Other)
  Sender: FDA-Public Use
  Company Number: DE-UCBSA-098486

PATIENT
  Age: 35 Year
  Sex: Female

DRUGS (1)
  1. CIMZIA [Suspect]
     Indication: RHEUMATOID ARTHRITIS

REACTIONS (13)
  - Cardiovascular disorder [Unknown]
  - Infection [Unknown]
  - Liver function test abnormal [Unknown]
  - Pancreatitis [Unknown]
  - Renal impairment [Unknown]
  - Medical induction of coma [Unknown]
  - Hypersensitivity [Unknown]
  - Thermal burn [Unknown]
  - Dry skin [Unknown]
  - Dry eye [Unknown]
  - Pruritus [Unknown]
  - Adverse reaction [Unknown]
  - Drug effect decreased [Recovered/Resolved]
